FAERS Safety Report 16836011 (Version 1)
Quarter: 2019Q3

REPORT INFORMATION
  Report Type: Spontaneous
  Country: CN (occurrence: CN)
  Receive Date: 20190920
  Receipt Date: 20190920
  Transmission Date: 20191005
  Serious: Yes (Other)
  Sender: FDA-Public Use
  Company Number: CN-BAXTER-2019BAX018303

PATIENT
  Age: 38 Year
  Sex: Female
  Weight: 53 kg

DRUGS (4)
  1. AIDASHENG [Suspect]
     Active Substance: EPIRUBICIN HYDROCHLORIDE
     Indication: BREAST CANCER FEMALE
     Dosage: EPIRUBICIN HYDROCHLORIDE 125 MG DILUTED WITH NS 100 ML, FOR FIRST CHEMOTHERAPY
     Route: 041
     Dates: start: 20190812, end: 20190812
  2. 0.9% SODIUM CHLORIDE INJECTION [Suspect]
     Active Substance: SODIUM CHLORIDE
     Indication: MEDICATION DILUTION
     Dosage: CYCLOPHOSPHAMIDE 830 MG DILUTED WITH 45 ML NS, FOR FIRST CHEMOTHERAPY
     Route: 042
     Dates: start: 20190812, end: 20190812
  3. ENDOXAN [Suspect]
     Active Substance: CYCLOPHOSPHAMIDE
     Indication: BREAST CANCER FEMALE
     Dosage: CYCLOPHOSPHAMIDE 830 MG DILUTED WITH 45 ML NS, FOR FIRST CHEMOTHERAPY
     Route: 042
     Dates: start: 20190812, end: 20190812
  4. 0.9% SODIUM CHLORIDE INJECTION [Suspect]
     Active Substance: SODIUM CHLORIDE
     Dosage: EPIRUBICIN HYDROCHLORIDE 125 MG DILUTED WITH NS 100 ML, FOR FIRST CHEMOTHERAPY
     Route: 041
     Dates: start: 20190812, end: 20190812

REACTIONS (1)
  - Agranulocytosis [Recovered/Resolved]

NARRATIVE: CASE EVENT DATE: 20190819
